FAERS Safety Report 8545973-0 (Version None)
Quarter: 2012Q3

REPORT INFORMATION
  Report Type: 
  Country: None (occurrence: None)
  Receive Date: 20120727
  Receipt Date: 20120126
  Transmission Date: 20120928
  Serious: No
  Sender: FDA-Public Use
  Company Number: US-ASTRAZENECA-2011SE72267

PATIENT
  Age: 47 Year
  Sex: Male

DRUGS (11)
  1. LITHIUM CARBONATE [Concomitant]
     Indication: MOOD SWINGS
     Route: 048
     Dates: start: 20110330
  2. SEROQUEL [Suspect]
     Indication: MOOD SWINGS
     Route: 048
  3. SEROQUEL [Suspect]
     Route: 048
     Dates: start: 20110302
  4. SEROQUEL [Suspect]
     Indication: BIPOLAR DISORDER
     Route: 048
  5. SEROQUEL [Suspect]
     Route: 048
     Dates: start: 20110302
  6. SEROQUEL [Suspect]
     Route: 048
     Dates: start: 20110302
  7. CYMBALTA [Concomitant]
     Indication: DEPRESSION
     Route: 048
     Dates: start: 20110302
  8. SEROQUEL [Suspect]
     Indication: DEPRESSION
     Route: 048
  9. SEROQUEL [Suspect]
     Route: 048
     Dates: start: 20110302
  10. CYMBALTA [Concomitant]
     Indication: ANXIETY
     Route: 048
     Dates: start: 20110302
  11. SEROQUEL [Suspect]
     Indication: ANXIETY
     Route: 048

REACTIONS (5)
  - RESTLESSNESS [None]
  - NERVOUSNESS [None]
  - IRRITABILITY [None]
  - DRUG DOSE OMISSION [None]
  - INSOMNIA [None]
